FAERS Safety Report 8855759 (Version 1)
Quarter: 2012Q4

REPORT INFORMATION
  Report Type: Spontaneous
  Country: US (occurrence: None)
  Receive Date: 20121019
  Receipt Date: 20121019
  Transmission Date: 20130627
  Serious: Yes (Other)
  Sender: FDA-Public Use
  Company Number: None

PATIENT
  Age: 22 Year
  Sex: Male
  Weight: 78.02 kg

DRUGS (6)
  1. KEPPRA XR [Suspect]
     Indication: SEIZURE
     Dosage: 3 tablets  B^fast + Bedtime
     Route: 048
     Dates: start: 20080603
  2. DEPAKOTE ER [Concomitant]
  3. FELBUTON [Concomitant]
  4. ONFI [Concomitant]
  5. DIASTAT SUPPOSITORY [Concomitant]
  6. KLONOPIN [Concomitant]

REACTIONS (2)
  - Epilepsy [None]
  - Grand mal convulsion [None]
